FAERS Safety Report 9163639 (Version 1)
Quarter: 2013Q1

REPORT INFORMATION
  Report Type: Spontaneous
  Country: US (occurrence: US)
  Receive Date: 20130314
  Receipt Date: 20130314
  Transmission Date: 20140127
  Serious: Yes (Other)
  Sender: FDA-Public Use
  Company Number: US-PFIZER INC-2013084982

PATIENT
  Sex: Female

DRUGS (2)
  1. LYRICA [Suspect]
     Indication: FIBROMYALGIA
     Dosage: 300 MG/DAY
  2. LYRICA [Suspect]
     Indication: NEURALGIA

REACTIONS (5)
  - Sciatica [Unknown]
  - Pain in extremity [Unknown]
  - Burning sensation [Unknown]
  - Erythema [Unknown]
  - Peroneal nerve injury [Unknown]
